FAERS Safety Report 4845846-0 (Version None)
Quarter: 2005Q4

REPORT INFORMATION
  Report Type: 
  Country: None (occurrence: None)
  Receive Date: 20051206
  Receipt Date: 20051129
  Transmission Date: 20060501
  Serious: Yes (Death)
  Sender: FDA-Public Use
  Company Number: US-GLAXOSMITHKLINE-B0402105A

PATIENT
  Age: 83 Year
  Sex: Male

DRUGS (12)
  1. WARFARIN SODIUM [Suspect]
     Route: 065
     Dates: end: 20040616
  2. SULFAMETHOXAZOLE + TRIMETHOPRIM [Suspect]
     Indication: URINARY TRACT INFECTION
     Route: 065
     Dates: end: 20040530
  3. HYDROXYZINE [Concomitant]
     Dosage: 10MG PER DAY
     Route: 065
     Dates: end: 20040527
  4. VITAMIN CAP [Concomitant]
     Route: 065
  5. STOOL SOFTENER [Concomitant]
     Route: 065
  6. ASCORBIC ACID [Concomitant]
     Dosage: 500MG TWICE PER DAY
     Route: 065
  7. GABAPENTIN [Concomitant]
     Indication: NEUROPATHY
     Dosage: 400MG THREE TIMES PER DAY
     Route: 048
  8. ALBUTEROL [Concomitant]
     Route: 055
  9. DIAZEPAM [Concomitant]
     Dosage: 2MG AT NIGHT
     Route: 065
  10. OXYGEN [Concomitant]
     Route: 065
  11. ACETAMINOPHEN [Concomitant]
     Dosage: 650MG AS REQUIRED
     Route: 065
  12. ZINC [Concomitant]
     Dosage: 220MG PER DAY
     Route: 065

REACTIONS (5)
  - CEREBROVASCULAR ACCIDENT [None]
  - COAGULOPATHY [None]
  - DEPRESSED LEVEL OF CONSCIOUSNESS [None]
  - DRUG INTERACTION [None]
  - FACIAL PALSY [None]
